FAERS Safety Report 6295467-0 (Version None)
Quarter: 2009Q3

REPORT INFORMATION
  Report Type: 
  Country: None (occurrence: None)
  Receive Date: 20090731
  Receipt Date: 20090727
  Transmission Date: 20100115
  Serious: Yes (Death, Hospitalization)
  Sender: FDA-Public Use
  Company Number: 2009JP004278

PATIENT
  Sex: Male

DRUGS (1)
  1. PROGRAF [Suspect]
     Indication: RHEUMATOID ARTHRITIS
     Dosage: 2 MG, ORAL
     Route: 048

REACTIONS (4)
  - JUDGEMENT IMPAIRED [None]
  - MENTAL DISORDER [None]
  - PNEUMONIA [None]
  - TREATMENT NONCOMPLIANCE [None]
